FAERS Safety Report 8853892 (Version 1)
Quarter: 2012Q4

REPORT INFORMATION
  Report Type: 
  Country: GB (occurrence: GB)
  Receive Date: 20121022
  Receipt Date: 20121022
  Transmission Date: 20130627
  Serious: Yes (Other)
  Sender: FDA-Public Use
  Company Number: PHFR2012GB004444

PATIENT
  Age: 28 Year
  Sex: Female

DRUGS (9)
  1. CLOZARIL [Suspect]
     Route: 048
     Dates: start: 20090721
  2. SALBUTAMOL [Concomitant]
  3. VALPROATE SEMISODIUM [Concomitant]
     Dosage: 1750 mg, UNK
     Route: 048
     Dates: start: 20090330
  4. FLUOXETINE [Concomitant]
     Dosage: 20 mg, UNK
     Route: 048
     Dates: start: 20100519
  5. METFORMIN [Concomitant]
     Dosage: 2000 mg, UNK
     Route: 048
     Dates: start: 20111012
  6. CLOZAPINE [Concomitant]
     Dosage: 150 mg, UNK
     Route: 048
     Dates: start: 20100803
  7. CHLORPROMAZINE [Concomitant]
     Dosage: 200 mg, UNK
     Route: 048
     Dates: start: 20120925
  8. PROCYCLIDINE [Concomitant]
     Dosage: 10 mg, UNK
     Route: 048
     Dates: start: 20120925
  9. OMEPRAZOLE [Concomitant]
     Dosage: 40 mg, UNK
     Route: 048
     Dates: start: 20090402

REACTIONS (3)
  - Oropharyngeal pain [Recovered/Resolved]
  - White blood cell count increased [Unknown]
  - Body temperature increased [Recovered/Resolved]
